FAERS Safety Report 24693433 (Version 1)
Quarter: 2024Q4

REPORT INFORMATION
  Report Type: Spontaneous
  Country: IL (occurrence: IL)
  Receive Date: 20241203
  Receipt Date: 20241203
  Transmission Date: 20250114
  Serious: Yes (Life-Threatening, Other)
  Sender: AMGEN
  Company Number: IL-AMGEN-ISRSP2024235338

PATIENT

DRUGS (2)
  1. BEVACIZUMAB [Suspect]
     Active Substance: BEVACIZUMAB
     Indication: Hepatocellular carcinoma
     Dosage: UNK
     Route: 065
  2. ATEZOLIZUMAB [Concomitant]
     Active Substance: ATEZOLIZUMAB
     Dosage: UNK
     Route: 065

REACTIONS (5)
  - Hepatitis [Unknown]
  - Infusion related reaction [Unknown]
  - Hepatocellular carcinoma [Unknown]
  - Diarrhoea [Unknown]
  - Off label use [Unknown]
